FAERS Safety Report 5478866-6 (Version None)
Quarter: 2007Q4

REPORT INFORMATION
  Report Type: 
  Country: None (occurrence: None)
  Receive Date: 20071002
  Receipt Date: 20070921
  Transmission Date: 20080405
  Serious: Yes (Disabling)
  Sender: FDA-Public Use
  Company Number: 1-15341408/MED-07202

PATIENT
  Age: 50 Year
  Sex: Female

DRUGS (1)
  1. THIORIDAZINE [Suspect]
     Indication: PSYCHOTIC DISORDER
     Dosage: 2000MG/DAY X 6 WEEKS, ORAL
     Route: 048
     Dates: start: 19720101, end: 19720101

REACTIONS (6)
  - BLINDNESS [None]
  - COLOUR BLINDNESS [None]
  - DETACHMENT OF RETINAL PIGMENT EPITHELIUM [None]
  - NIGHT BLINDNESS [None]
  - RETINOPATHY [None]
  - VISION BLURRED [None]
